FAERS Safety Report 11059181 (Version 2)
Quarter: 2015Q2

REPORT INFORMATION
  Report Type: Report from Study
  Country: DE (occurrence: DE)
  Receive Date: 20150423
  Receipt Date: 20150427
  Transmission Date: 20150821
  Serious: Yes (Hospitalization, Other)
  Sender: FDA-Public Use
  Company Number: PHHY2013DE148760

PATIENT
  Sex: Female
  Weight: 65 kg

DRUGS (7)
  1. ICL670A [Suspect]
     Active Substance: DEFERASIROX
     Dosage: 500 MG, QD (2X 250 MG)
     Route: 048
     Dates: start: 20141027, end: 20141201
  2. ICL670A [Suspect]
     Active Substance: DEFERASIROX
     Indication: IRON OVERLOAD
     Dosage: 1000 MG, 15 MG/KG PER DAY 2 TABLETS OF 500 MG
     Route: 048
     Dates: start: 20130308, end: 20130819
  3. ICL670A [Suspect]
     Active Substance: DEFERASIROX
     Dosage: 1250 MG, 1 TABLET 250 MG AND 2 TABLETS 500MG, 19.53 MG/KG PER DAY
     Route: 048
     Dates: start: 20130820
  4. ICL670A [Suspect]
     Active Substance: DEFERASIROX
     Dosage: 250 MG, QD
     Route: 048
     Dates: start: 20141023, end: 20141026
  5. THYROXIN [Concomitant]
     Active Substance: LEVOTHYROXINE
     Indication: HYPOTHYROIDISM
     Dosage: 50 MG, UNK
     Route: 048
  6. ICL670A [Suspect]
     Active Substance: DEFERASIROX
     Indication: MYELOPROLIFERATIVE DISORDER
     Dosage: 750 MG, PER DAY, 12 MG/KG PER DAY (3 TABLETS OF 250 MG /DAY)
     Route: 048
     Dates: start: 20121227, end: 20130307
  7. NITRENDIPINE [Concomitant]
     Active Substance: NITRENDIPINE
     Indication: HYPERTENSION
     Dosage: 10 MG, UNK
     Route: 048

REACTIONS (7)
  - Pneumonia [Recovered/Resolved]
  - Myeloproliferative disorder [Not Recovered/Not Resolved]
  - Disease progression [Not Recovered/Not Resolved]
  - General physical health deterioration [Not Recovered/Not Resolved]
  - Diarrhoea [Unknown]
  - Pyrexia [Recovered/Resolved]
  - Creatinine renal clearance decreased [Not Recovered/Not Resolved]

NARRATIVE: CASE EVENT DATE: 20131203
